FAERS Safety Report 4696042-1 (Version None)
Quarter: 2005Q2

REPORT INFORMATION
  Report Type: 
  Country: None (occurrence: None)
  Receive Date: 20050621
  Receipt Date: 20050620
  Transmission Date: 20051028
  Serious: Yes (Life-Threatening)
  Sender: FDA-Public Use
  Company Number: FR-GLAXOSMITHKLINE-B0385036A

PATIENT
  Age: 35 Year
  Sex: Female

DRUGS (1)
  1. CLAMOXYL [Suspect]
     Indication: UPPER RESPIRATORY TRACT INFECTION
     Dosage: 1G SINGLE DOSE
     Route: 048
     Dates: start: 20041215, end: 20041215

REACTIONS (4)
  - ABDOMINAL PAIN [None]
  - ANAPHYLACTIC SHOCK [None]
  - DYSPNOEA [None]
  - HYPOTENSION [None]
